FAERS Safety Report 8089001-2 (Version None)
Quarter: 2012Q1

REPORT INFORMATION
  Report Type: 
  Country: None (occurrence: None)
  Receive Date: 20120128
  Receipt Date: 20110708
  Transmission Date: 20120608
  Serious: No
  Sender: FDA-Public Use
  Company Number: US-ABBOTT-11P-163-0837320-00

PATIENT
  Age: 50 Year
  Sex: Female

DRUGS (6)
  1. EXCEDRIN [Concomitant]
     Indication: PAIN
     Dosage: DOSE NOT REPORTED - PRN
  2. IBUPROFEN [Concomitant]
     Indication: PAIN
     Dosage: DOSE NOT REPORTED - PRN
  3. PREMPRO [Concomitant]
     Indication: MENOPAUSAL SYMPTOMS
     Dosage: 0.3MG/1.5MG
  4. CYMBALTA [Concomitant]
     Indication: DEPRESSION
     Dosage: 60 MG DAILY
  5. HUMIRA [Suspect]
     Indication: PSORIASIS
     Dates: start: 20110401
  6. SYNTHROID [Concomitant]
     Indication: HYPOTHYROIDISM
     Dosage: 0.25 MICROGRAMS DAILY

REACTIONS (2)
  - PAIN [None]
  - FATIGUE [None]
